FAERS Safety Report 14735741 (Version 1)
Quarter: 2018Q2

REPORT INFORMATION
  Report Type: Spontaneous
  Country: US (occurrence: US)
  Receive Date: 20180409
  Receipt Date: 20180409
  Transmission Date: 20180711
  Serious: Yes (Hospitalization, Other)
  Sender: FDA-Public Use
  Company Number: US-ASTRAZENECA-2018SE42012

PATIENT
  Age: 65 Year
  Sex: Male

DRUGS (2)
  1. BRILINTA [Suspect]
     Active Substance: TICAGRELOR
     Indication: STENT PLACEMENT
     Route: 048
     Dates: start: 20180314
  2. ASA [Concomitant]
     Active Substance: ASPIRIN

REACTIONS (2)
  - Tooth disorder [Unknown]
  - Headache [Unknown]
